FAERS Safety Report 9660225 (Version 1)
Quarter: 2013Q4

REPORT INFORMATION
  Report Type: Spontaneous
  Country: US (occurrence: US)
  Receive Date: 20131031
  Receipt Date: 20131031
  Transmission Date: 20140711
  Serious: Yes (Other)
  Sender: FDA-Public Use
  Company Number: US-NAPPMUNDI-USA-2011-0066978

PATIENT
  Age: 33 Year
  Sex: Male

DRUGS (2)
  1. OXYCONTIN TABLETS [Suspect]
     Indication: BACK PAIN
     Dosage: UNK UNK, UNK
  2. OXYCONTIN TABLETS [Suspect]
     Indication: INTERVERTEBRAL DISC DEGENERATION

REACTIONS (5)
  - Drug abuse [Recovered/Resolved]
  - Euphoric mood [Recovered/Resolved]
  - Drug withdrawal syndrome [Recovered/Resolved]
  - Vomiting [Recovered/Resolved]
  - Diarrhoea [Recovered/Resolved]
